FAERS Safety Report 15455664 (Version 1)
Quarter: 2018Q4

REPORT INFORMATION
  Report Type: Spontaneous
  Country: IT (occurrence: IT)
  Receive Date: 20181002
  Receipt Date: 20181002
  Transmission Date: 20190204
  Serious: Yes (Other)
  Sender: FDA-Public Use
  Company Number: IT-PENTEC HEALTH-2018PEN00050

PATIENT
  Age: 8 Week
  Sex: Male
  Weight: 1.03 kg

DRUGS (1)
  1. VANCOMYCIN HYDROCHLORIDE. [Suspect]
     Active Substance: VANCOMYCIN HYDROCHLORIDE
     Indication: OSTEOMYELITIS
     Dosage: 10 MG/KG, EVERY 8 HOURS, OVER 60 MINUTES VIA A PERIPHERAL LINE

REACTIONS (1)
  - Red man syndrome [Recovered/Resolved]
